FAERS Safety Report 4649398-X (Version None)
Quarter: 2005Q2

REPORT INFORMATION
  Report Type: 
  Country: None (occurrence: None)
  Receive Date: 20050428
  Receipt Date: 20050428
  Transmission Date: 20051028
  Serious: Yes (Death)
  Sender: FDA-Public Use
  Company Number: None

PATIENT
  Age: 79 Year
  Sex: Female
  Weight: 75.2971 kg

DRUGS (2)
  1. PACLITAXEL [Suspect]
     Indication: NON-SMALL CELL LUNG CANCER
     Dosage: 200MG/M2 Q 3 WKS
     Dates: start: 20040412
  2. CARBOPLATIN [Suspect]
     Dosage: AUC 6.0 IV Q 3 WKS
     Route: 042
     Dates: start: 20040412

REACTIONS (16)
  - ASCITES [None]
  - ASTHENIA [None]
  - BEDRIDDEN [None]
  - BLOOD CHLORIDE DECREASED [None]
  - CARBON DIOXIDE DECREASED [None]
  - DYSPNOEA [None]
  - GASTROINTESTINAL HAEMORRHAGE [None]
  - HYPERKALAEMIA [None]
  - HYPERTENSION [None]
  - HYPOVOLAEMIA [None]
  - MENTAL STATUS CHANGES [None]
  - METASTASES TO LIVER [None]
  - MYOCARDIAL INFARCTION [None]
  - ORAL INTAKE REDUCED [None]
  - RENAL FAILURE [None]
  - RESPIRATORY FAILURE [None]
